FAERS Safety Report 20683498 (Version 1)
Quarter: 2022Q2

REPORT INFORMATION
  Report Type: Spontaneous
  Country: PL (occurrence: PL)
  Receive Date: 20220407
  Receipt Date: 20220407
  Transmission Date: 20220720
  Serious: Yes (Other)
  Sender: FDA-Public Use
  Company Number: PL-PFIZER INC-202200323277

PATIENT
  Sex: Male

DRUGS (3)
  1. ALPRAZOLAM [Interacting]
     Active Substance: ALPRAZOLAM
     Indication: Product used for unknown indication
     Dosage: UNK
  2. PROPRANOLOL [Interacting]
     Active Substance: PROPRANOLOL HYDROCHLORIDE
     Indication: Product used for unknown indication
     Dosage: UNK
  3. HERBALS [Interacting]
     Active Substance: HERBALS
     Indication: Anxiety disorder
     Dosage: UNK

REACTIONS (3)
  - Cholestasis [Recovered/Resolved]
  - Drug interaction [Recovered/Resolved]
  - Drug abuse [Unknown]
